FAERS Safety Report 16896901 (Version 1)
Quarter: 2019Q4

REPORT INFORMATION
  Report Type: Report from Study
  Country: None (occurrence: BR)
  Receive Date: 20191009
  Receipt Date: 20191009
  Transmission Date: 20200122
  Serious: Yes (Other)
  Sender: FDA-Public Use
  Company Number: BR-ABBVIE-19K-020-2949771-00

PATIENT
  Sex: Female
  Weight: 57.2 kg

DRUGS (2)
  1. ENALAPRIL [Concomitant]
     Active Substance: ENALAPRIL
     Indication: PRODUCT USED FOR UNKNOWN INDICATION
     Route: 065
  2. HUMIRA [Suspect]
     Active Substance: ADALIMUMAB
     Indication: RHEUMATOID ARTHRITIS
     Route: 058
     Dates: start: 20180507, end: 2019

REACTIONS (8)
  - Tooth socket haemorrhage [Unknown]
  - Nervousness [Unknown]
  - Haemorrhage [Unknown]
  - Tooth loss [Unknown]
  - Coagulopathy [Unknown]
  - Blood pressure increased [Unknown]
  - Tooth disorder [Unknown]
  - Mental disorder [Unknown]
